FAERS Safety Report 5540389-3 (Version None)
Quarter: 2007Q4

REPORT INFORMATION
  Report Type: 
  Country: None (occurrence: None)
  Receive Date: 20071129
  Receipt Date: 20070719
  Transmission Date: 20080405
  Serious: Yes (Death, Hospitalization)
  Sender: FDA-Public Use
  Company Number: US200704006094

PATIENT
  Age: 81 Year
  Sex: Male

DRUGS (3)
  1. ZYPREXA [Suspect]
     Indication: AGITATION
     Dosage: 5 MG, ORAL
     Route: 048
     Dates: start: 20070411, end: 20070422
  2. LEXAPRO [Concomitant]
  3. DEPAKOTE [Concomitant]

REACTIONS (4)
  - AGGRESSION [None]
  - AGITATION [None]
  - COMA [None]
  - SUDDEN DEATH [None]
